FAERS Safety Report 16582857 (Version 5)
Quarter: 2020Q2

REPORT INFORMATION
  Report Type: Report from Study
  Country: None (occurrence: CA)
  Receive Date: 20190717
  Receipt Date: 20200608
  Transmission Date: 20200713
  Serious: Yes (Death, Hospitalization, Other)
  Sender: FDA-Public Use
  Company Number: CA-ABBVIE-19K-028-2854381-00

PATIENT
  Sex: Male

DRUGS (1)
  1. HUMIRA [Suspect]
     Active Substance: ADALIMUMAB
     Indication: ANKYLOSING SPONDYLITIS
     Route: 058
     Dates: start: 20120811, end: 201907

REACTIONS (4)
  - Cardiovascular disorder [Fatal]
  - Poor peripheral circulation [Recovered/Resolved]
  - Gangrene [Not Recovered/Not Resolved]
  - Foot amputation [Recovered/Resolved]

NARRATIVE: CASE EVENT DATE: 2019
